FAERS Safety Report 7705881-1 (Version None)
Quarter: 2011Q3

REPORT INFORMATION
  Report Type: 
  Country: None (occurrence: None)
  Receive Date: 20110824
  Receipt Date: 20110812
  Transmission Date: 20111222
  Serious: No
  Sender: FDA-Public Use
  Company Number: US-B.I. PHARMACEUTICALS,INC./RIDGEFIELD-2011-BP-20045BP

PATIENT
  Sex: Female

DRUGS (5)
  1. LISINOPRIL [Concomitant]
  2. NITROGLYCERIN [Concomitant]
  3. PLAVIX [Concomitant]
  4. SPIRIVA [Suspect]
     Indication: CHRONIC OBSTRUCTIVE PULMONARY DISEASE
     Dosage: 18 MCG
     Route: 055
     Dates: start: 20100901
  5. DIGOXIN [Concomitant]

REACTIONS (1)
  - CHOKING SENSATION [None]
